FAERS Safety Report 4334482-0 (Version None)
Quarter: 2004Q2

REPORT INFORMATION
  Report Type: 
  Country: None (occurrence: None)
  Receive Date: 20040407
  Receipt Date: 20031218
  Transmission Date: 20050107
  Serious: Yes (Other)
  Sender: FDA-Public Use
  Company Number: US-GLAXOSMITHKLINE-A0443672A

PATIENT
  Age: 48 Year
  Sex: Male

DRUGS (4)
  1. THORAZINE [Suspect]
     Indication: ILL-DEFINED DISORDER
     Route: 030
     Dates: start: 20020702, end: 20020704
  2. RESTORIL [Concomitant]
     Indication: INSOMNIA
     Dosage: 30MG AT NIGHT
     Route: 048
     Dates: start: 20030922
  3. VISTARIL [Concomitant]
     Indication: AGITATION
     Dosage: 50MG PER DAY
     Route: 048
     Dates: start: 20030922
  4. XANAX [Concomitant]
     Indication: ANXIETY
     Dosage: 2MG TWICE PER DAY
     Route: 048
     Dates: start: 20030922

REACTIONS (10)
  - AGEUSIA [None]
  - ANHEDONIA [None]
  - BRAIN DAMAGE [None]
  - CARDIAC DISORDER [None]
  - GASTROINTESTINAL DISORDER [None]
  - HAEMORRHAGE [None]
  - OVERDOSE [None]
  - RENAL FAILURE ACUTE [None]
  - TINNITUS [None]
  - TONGUE DISORDER [None]
